FAERS Safety Report 25578490 (Version 1)
Quarter: 2025Q3

REPORT INFORMATION
  Report Type: Spontaneous
  Country: US (occurrence: None)
  Receive Date: 20250717
  Receipt Date: 20250717
  Transmission Date: 20251021
  Serious: Yes (Disabling)
  Sender: FDA-CTU
  Company Number: None

PATIENT
  Age: 67 Year
  Sex: Male
  Weight: 76.5 kg

DRUGS (2)
  1. BREYNA [Suspect]
     Active Substance: BUDESONIDE\FORMOTEROL FUMARATE
     Indication: Asthma
     Dosage: OTHER STRENGTH : MCG;?OTHER QUANTITY : 1 PUFF(S);?FREQUENCY : AT BEDTIME;?
     Route: 055
     Dates: start: 20250602, end: 20250710
  2. MONTELUKAST [Concomitant]
     Active Substance: MONTELUKAST

REACTIONS (4)
  - Pulmonary congestion [None]
  - Back pain [None]
  - Headache [None]
  - Dyspnoea [None]

NARRATIVE: CASE EVENT DATE: 20250707
